FAERS Safety Report 17266865 (Version 1)
Quarter: 2020Q1

REPORT INFORMATION
  Report Type: Spontaneous
  Country: CA (occurrence: CA)
  Receive Date: 20200114
  Receipt Date: 20200114
  Transmission Date: 20200409
  Serious: Yes (Other)
  Sender: FDA-Public Use
  Company Number: CA-PFIZER INC-2019166301

PATIENT
  Age: 70 Year
  Sex: Female
  Weight: 61.69 kg

DRUGS (5)
  1. VARICELLA ZOSTER VACCINE [Suspect]
     Active Substance: VARICELLA-ZOSTER VIRUS STRAIN OKA/MERCK LIVE ANTIGEN
     Indication: PROPHYLAXIS
     Dosage: UNK
     Dates: start: 2019, end: 2019
  2. SULFASALAZINE. [Suspect]
     Active Substance: SULFASALAZINE
     Dosage: 500 MG, 3X/DAY
     Route: 048
  3. HUMIRA [Concomitant]
     Active Substance: ADALIMUMAB
     Dosage: UNK
     Route: 065
     Dates: start: 201507, end: 2019
  4. HYDROXYCHLOROQUINE [Concomitant]
     Active Substance: HYDROXYCHLOROQUINE
     Dosage: 300 MG, DAILY
     Route: 048
  5. PREDNISONE. [Concomitant]
     Active Substance: PREDNISONE
     Dosage: 5 MG Q UNK
     Route: 065

REACTIONS (12)
  - Confusional state [Unknown]
  - Frustration tolerance decreased [Unknown]
  - Vomiting [Unknown]
  - Headache [Unknown]
  - Chills [Unknown]
  - Behaviour disorder [Unknown]
  - Hernia [Unknown]
  - Throat tightness [Unknown]
  - Muscular weakness [Unknown]
  - Drug ineffective [Unknown]
  - Dizziness [Unknown]
  - Pain [Unknown]
